FAERS Safety Report 9408349 (Version 2)
Quarter: 2013Q3

REPORT INFORMATION
  Report Type: Spontaneous
  Country: IT (occurrence: IT)
  Receive Date: 20130718
  Receipt Date: 20130807
  Transmission Date: 20140515
  Serious: Yes (Other)
  Sender: FDA-Public Use
  Company Number: IT-GLAXOSMITHKLINE-B0908751A

PATIENT
  Age: 90 Year
  Sex: Male

DRUGS (5)
  1. REQUIP [Suspect]
     Indication: PARKINSON^S DISEASE
     Dosage: 4MG PER DAY
     Route: 065
  2. SINEMET [Suspect]
     Indication: PARKINSON^S DISEASE
     Dosage: 250MG THREE TIMES PER DAY
     Route: 048
  3. CALCIUM ANTAGONIST [Concomitant]
     Indication: HYPERTENSION
  4. ANTIRHEUMATIC MEDICATION [Concomitant]
  5. DIGITALE [Concomitant]

REACTIONS (5)
  - Parkinson^s disease [Unknown]
  - Dyskinesia [Recovering/Resolving]
  - Drooling [Recovering/Resolving]
  - Restless legs syndrome [Recovering/Resolving]
  - Gait disturbance [Unknown]
